FAERS Safety Report 5804241-8 (Version None)
Quarter: 2008Q3

REPORT INFORMATION
  Report Type: 
  Country: None (occurrence: None)
  Receive Date: 20080707
  Receipt Date: 20080620
  Transmission Date: 20090109
  Serious: Yes (Hospitalization)
  Sender: FDA-Public Use
  Company Number: 2005US001192

PATIENT
  Age: 64 Year
  Sex: Female

DRUGS (1)
  1. TACROLIMUS [Suspect]
     Indication: HEART TRANSPLANT
     Dosage: 4 MG, UID/QD, ORAL; 2 MG, BID, ORAL
     Route: 048
     Dates: start: 20050420

REACTIONS (6)
  - BLOOD CREATININE INCREASED [None]
  - FALL [None]
  - OEDEMA PERIPHERAL [None]
  - ROTATOR CUFF SYNDROME [None]
  - SYNCOPE [None]
  - UNEVALUABLE EVENT [None]
